FAERS Safety Report 8288861-X (Version None)
Quarter: 2012Q2

REPORT INFORMATION
  Report Type: 
  Country: None (occurrence: None)
  Receive Date: 20120411
  Receipt Date: 20120409
  Transmission Date: 20120825
  Serious: Yes (Death, Hospitalization)
  Sender: FDA-Public Use
  Company Number: ADR-2011-11093

PATIENT
  Sex: Female

DRUGS (5)
  1. PRIALT [Concomitant]
  2. LIORESAL [Suspect]
     Indication: MUSCLE SPASTICITY
     Dosage: 208.84 MCG, DAILY, INTR
     Route: 037
  3. DILAUDID [Concomitant]
  4. CLONIDINE [Concomitant]
  5. BUPIVICAINE [Concomitant]

REACTIONS (2)
  - DECUBITUS ULCER [None]
  - INFECTED SKIN ULCER [None]
